FAERS Safety Report 5027215-6 (Version None)
Quarter: 2006Q2

REPORT INFORMATION
  Report Type: 
  Country: None (occurrence: None)
  Receive Date: 20060501
  Receipt Date: 20060107
  Transmission Date: 20061013
  Serious: No
  Sender: FDA-Public Use
  Company Number: 2006PV006852

PATIENT
  Sex: Female

DRUGS (2)
  1. SYMLIN [Suspect]
     Dosage: 60 MCG; TID; SC
     Route: 058
  2. INSULIN [Concomitant]

REACTIONS (2)
  - BLOOD GLUCOSE FLUCTUATION [None]
  - DRUG INEFFECTIVE [None]
